FAERS Safety Report 4414421-4 (Version None)
Quarter: 2004Q3

REPORT INFORMATION
  Report Type: 
  Country: None (occurrence: None)
  Receive Date: 20040702
  Receipt Date: 20030805
  Transmission Date: 20050211
  Serious: Yes (Other)
  Sender: FDA-Public Use
  Company Number: PHEH2003US05951

PATIENT
  Age: 33 Year
  Sex: Female
  Weight: 67.1 kg

DRUGS (1)
  1. LAMISIL [Suspect]
     Dosage: BID, TOPICAL
     Route: 061
     Dates: start: 20030707, end: 20030708

REACTIONS (6)
  - DYSPHAGIA [None]
  - ERYTHEMA [None]
  - HYPERSENSITIVITY [None]
  - PRURITUS [None]
  - RASH [None]
  - URTICARIA [None]
